FAERS Safety Report 8257383-4 (Version None)
Quarter: 2012Q2

REPORT INFORMATION
  Report Type: 
  Country: None (occurrence: None)
  Receive Date: 20120403
  Receipt Date: 20120328
  Transmission Date: 20120825
  Serious: Yes (Hospitalization)
  Sender: FDA-Public Use
  Company Number: SK-PFIZER INC-2012065949

PATIENT
  Age: 67 Year
  Sex: Male

DRUGS (12)
  1. TIGECYCLINE [Suspect]
     Indication: MEDIASTINITIS
     Dosage: UNK
  2. VANCOMYCIN [Suspect]
     Indication: SEPSIS
  3. ZYVOX [Suspect]
     Indication: SEPSIS
  4. CEFOPERAZONE SODIUM [Suspect]
     Indication: MEDIASTINITIS
     Dosage: UNK
  5. ZYVOX [Suspect]
     Indication: MEDIASTINITIS
     Dosage: UNK
  6. IMIPENEM AND CILASTATIN SODIUM [Suspect]
     Indication: MEDIASTINITIS
     Dosage: UNK
  7. CEFOPERAZONE SODIUM [Suspect]
     Indication: SEPSIS
  8. TIGECYCLINE [Suspect]
     Indication: SEPSIS
  9. DIFLUCAN [Suspect]
     Indication: SEPSIS
  10. IMIPENEM AND CILASTATIN SODIUM [Suspect]
     Indication: SEPSIS
  11. DIFLUCAN [Suspect]
     Indication: MEDIASTINITIS
     Dosage: UNK
  12. VANCOMYCIN [Suspect]
     Indication: MEDIASTINITIS
     Dosage: UNK

REACTIONS (16)
  - ANASTOMOTIC COMPLICATION [None]
  - PALLOR [None]
  - HAEMODYNAMIC INSTABILITY [None]
  - STAPHYLOCOCCUS TEST POSITIVE [None]
  - MEDIASTINITIS [None]
  - HYPOTHERMIA [None]
  - MULTI-ORGAN FAILURE [None]
  - OESOPHAGEAL DISORDER [None]
  - PSEUDOMONAS TEST POSITIVE [None]
  - CANDIDA TEST POSITIVE [None]
  - METASTASES TO LUNG [None]
  - RESPIRATORY FAILURE [None]
  - ENTEROCOCCUS TEST POSITIVE [None]
  - ACINETOBACTER TEST POSITIVE [None]
  - PERIPHERAL COLDNESS [None]
  - PROTEUS TEST POSITIVE [None]
